FAERS Safety Report 9504513 (Version 2)
Quarter: 2013Q3

REPORT INFORMATION
  Report Type: Report from Study
  Country: FR (occurrence: FR)
  Receive Date: 20130906
  Receipt Date: 20130906
  Transmission Date: 20140515
  Serious: Yes (Hospitalization, Other)
  Sender: FDA-Public Use
  Company Number: FR-VERTEX PHARMACEUTICALS INC-2013-009345

PATIENT
  Age: 77 Year
  Sex: Female
  Weight: 51 kg

DRUGS (9)
  1. VX-950 (TELAPREVIR) [Suspect]
     Indication: HEPATITIS C
     Dosage: 750 MG, TID
  2. PEGASYS [Suspect]
     Indication: HEPATITIS C
     Dosage: DOSAGE FORM: UNKNOWN
     Route: 065
     Dates: start: 20110609, end: 20111125
  3. COPEGUS [Suspect]
     Indication: HEPATITIS C
     Dosage: DOSAGE FORM: UNKNOWN
     Route: 065
     Dates: start: 20110609, end: 20111125
  4. BISOPROLOL [Concomitant]
     Indication: HYPERTENSION
     Dosage: 10 MG, QD
  5. GANFORT [Concomitant]
     Indication: GLAUCOMA
     Dosage: 1 DF, QD
     Dates: start: 2009
  6. SPECIAFOLDINE [Concomitant]
     Indication: ANAEMIA
     Dosage: 5 MG, QD
     Dates: start: 20111026
  7. SPECIAFOLDINE [Concomitant]
     Dosage: 5 MG, QD
  8. TARDYFERON [Concomitant]
     Indication: ANAEMIA
     Dates: start: 20111126
  9. NEORECORMON [Concomitant]
     Indication: ANAEMIA
     Dosage: 30000 IU, TWO DOSES ONCE A WEEK
     Dates: start: 20110825

REACTIONS (6)
  - Asthenia [Recovered/Resolved]
  - Vertigo [Recovered/Resolved]
  - Dehydration [Recovered/Resolved]
  - Weight decreased [Recovered/Resolved]
  - Malaise [Recovered/Resolved]
  - Vomiting [Recovered/Resolved]
